FAERS Safety Report 25337637 (Version 2)
Quarter: 2025Q2

REPORT INFORMATION
  Report Type: Spontaneous
  Country: ES (occurrence: ES)
  Receive Date: 20250520
  Receipt Date: 20250626
  Transmission Date: 20250717
  Serious: Yes (Hospitalization, Other)
  Sender: MYLAN
  Company Number: None

PATIENT
  Age: 51 Year
  Sex: Male

DRUGS (36)
  1. AMLODIPINE [Interacting]
     Active Substance: AMLODIPINE BESYLATE
     Indication: Product used for unknown indication
     Dates: start: 20240729, end: 20240801
  2. AMLODIPINE [Interacting]
     Active Substance: AMLODIPINE BESYLATE
     Route: 048
     Dates: start: 20240729, end: 20240801
  3. AMLODIPINE [Interacting]
     Active Substance: AMLODIPINE BESYLATE
     Route: 048
     Dates: start: 20240729, end: 20240801
  4. AMLODIPINE [Interacting]
     Active Substance: AMLODIPINE BESYLATE
     Dates: start: 20240729, end: 20240801
  5. GLICLAZIDE [Interacting]
     Active Substance: GLICLAZIDE
     Indication: Product used for unknown indication
     Dates: start: 20240729, end: 20240801
  6. GLICLAZIDE [Interacting]
     Active Substance: GLICLAZIDE
     Route: 048
     Dates: start: 20240729, end: 20240801
  7. GLICLAZIDE [Interacting]
     Active Substance: GLICLAZIDE
     Route: 048
     Dates: start: 20240729, end: 20240801
  8. GLICLAZIDE [Interacting]
     Active Substance: GLICLAZIDE
     Dates: start: 20240729, end: 20240801
  9. METFORMIN\VILDAGLIPTIN [Interacting]
     Active Substance: METFORMIN\VILDAGLIPTIN
     Indication: Product used for unknown indication
     Dates: start: 20240729, end: 20240801
  10. METFORMIN\VILDAGLIPTIN [Interacting]
     Active Substance: METFORMIN\VILDAGLIPTIN
     Route: 048
     Dates: start: 20240729, end: 20240801
  11. METFORMIN\VILDAGLIPTIN [Interacting]
     Active Substance: METFORMIN\VILDAGLIPTIN
     Route: 048
     Dates: start: 20240729, end: 20240801
  12. METFORMIN\VILDAGLIPTIN [Interacting]
     Active Substance: METFORMIN\VILDAGLIPTIN
     Dates: start: 20240729, end: 20240801
  13. ENALAPRIL MALEATE\HYDROCHLOROTHIAZIDE [Interacting]
     Active Substance: ENALAPRIL MALEATE\HYDROCHLOROTHIAZIDE
     Indication: Product used for unknown indication
     Dates: start: 20240729, end: 20240801
  14. ENALAPRIL MALEATE\HYDROCHLOROTHIAZIDE [Interacting]
     Active Substance: ENALAPRIL MALEATE\HYDROCHLOROTHIAZIDE
     Route: 048
     Dates: start: 20240729, end: 20240801
  15. ENALAPRIL MALEATE\HYDROCHLOROTHIAZIDE [Interacting]
     Active Substance: ENALAPRIL MALEATE\HYDROCHLOROTHIAZIDE
     Route: 048
     Dates: start: 20240729, end: 20240801
  16. ENALAPRIL MALEATE\HYDROCHLOROTHIAZIDE [Interacting]
     Active Substance: ENALAPRIL MALEATE\HYDROCHLOROTHIAZIDE
     Dates: start: 20240729, end: 20240801
  17. ACETAMINOPHEN [Interacting]
     Active Substance: ACETAMINOPHEN
     Indication: Product used for unknown indication
     Dates: start: 20240729, end: 20240801
  18. ACETAMINOPHEN [Interacting]
     Active Substance: ACETAMINOPHEN
     Route: 048
     Dates: start: 20240729, end: 20240801
  19. ACETAMINOPHEN [Interacting]
     Active Substance: ACETAMINOPHEN
     Route: 048
     Dates: start: 20240729, end: 20240801
  20. ACETAMINOPHEN [Interacting]
     Active Substance: ACETAMINOPHEN
     Dates: start: 20240729, end: 20240801
  21. METFORMIN [Interacting]
     Active Substance: METFORMIN HYDROCHLORIDE
     Indication: Product used for unknown indication
     Dates: start: 20240729, end: 20240801
  22. METFORMIN [Interacting]
     Active Substance: METFORMIN HYDROCHLORIDE
     Route: 048
     Dates: start: 20240729, end: 20240801
  23. METFORMIN [Interacting]
     Active Substance: METFORMIN HYDROCHLORIDE
     Route: 048
     Dates: start: 20240729, end: 20240801
  24. METFORMIN [Interacting]
     Active Substance: METFORMIN HYDROCHLORIDE
     Dates: start: 20240729, end: 20240801
  25. SIMVASTATIN [Interacting]
     Active Substance: SIMVASTATIN
     Indication: Product used for unknown indication
     Dates: start: 20240729, end: 20240801
  26. SIMVASTATIN [Interacting]
     Active Substance: SIMVASTATIN
     Route: 048
     Dates: start: 20240729, end: 20240801
  27. SIMVASTATIN [Interacting]
     Active Substance: SIMVASTATIN
     Route: 048
     Dates: start: 20240729, end: 20240801
  28. SIMVASTATIN [Interacting]
     Active Substance: SIMVASTATIN
     Dates: start: 20240729, end: 20240801
  29. METAMIZOLE [Interacting]
     Active Substance: METAMIZOLE
     Indication: Product used for unknown indication
     Dates: start: 20240729, end: 20240801
  30. METAMIZOLE [Interacting]
     Active Substance: METAMIZOLE
     Route: 048
     Dates: start: 20240729, end: 20240801
  31. METAMIZOLE [Interacting]
     Active Substance: METAMIZOLE
     Route: 048
     Dates: start: 20240729, end: 20240801
  32. METAMIZOLE [Interacting]
     Active Substance: METAMIZOLE
     Dates: start: 20240729, end: 20240801
  33. PREDNISONE [Interacting]
     Active Substance: PREDNISONE
     Indication: Product used for unknown indication
     Dates: start: 20240729, end: 20240801
  34. PREDNISONE [Interacting]
     Active Substance: PREDNISONE
     Route: 048
     Dates: start: 20240729, end: 20240801
  35. PREDNISONE [Interacting]
     Active Substance: PREDNISONE
     Route: 048
     Dates: start: 20240729, end: 20240801
  36. PREDNISONE [Interacting]
     Active Substance: PREDNISONE
     Dates: start: 20240729, end: 20240801

REACTIONS (5)
  - Acute kidney injury [Recovered/Resolved]
  - Hypokalaemia [Recovering/Resolving]
  - Suicide attempt [Unknown]
  - Drug interaction [Unknown]
  - Intentional overdose [Recovered/Resolved]

NARRATIVE: CASE EVENT DATE: 20240801
